FAERS Safety Report 6044951-3 (Version None)
Quarter: 2009Q1

REPORT INFORMATION
  Report Type: 
  Country: None (occurrence: None)
  Receive Date: 20090112
  Receipt Date: 20090112
  Transmission Date: 20090719
  Serious: Yes (Hospitalization)
  Sender: FDA-Public Use
  Company Number: None

PATIENT
  Age: 60 Year
  Sex: Female
  Weight: 49.4874 kg

DRUGS (15)
  1. BEVACIZUMAB [Suspect]
     Indication: METASTATIC GASTRIC CANCER
     Dosage: 7.5 MG/KG D1/22DAY CYCLE
     Dates: start: 20080903, end: 20081217
  2. OXALIPLATIN [Suspect]
     Indication: METASTATIC GASTRIC CANCER
     Dosage: 75MG/M2
     Dates: start: 20080903, end: 20081217
  3. DOCETAXEL [Suspect]
     Indication: METASTATIC GASTRIC CANCER
     Dosage: 55MG/M2 D1
     Dates: start: 20080903, end: 20081217
  4. TYLENOL [Concomitant]
  5. BONIVA [Concomitant]
  6. COMPAZINE [Concomitant]
  7. CRESTOR [Concomitant]
  8. METOPROLOL TARTRATE [Concomitant]
  9. MIRALAX [Concomitant]
  10. OMEPRAZOLE [Concomitant]
  11. RELPAX [Concomitant]
  12. ROXANOL [Concomitant]
  13. SENNA [Concomitant]
  14. MORPHINE [Concomitant]
  15. SIMETHICONE [Concomitant]

REACTIONS (7)
  - ABDOMINAL PAIN LOWER [None]
  - ASCITES [None]
  - FREQUENT BOWEL MOVEMENTS [None]
  - PAINFUL DEFAECATION [None]
  - PELVIC PAIN [None]
  - PERITONITIS BACTERIAL [None]
  - WAIST CIRCUMFERENCE INCREASED [None]
